FAERS Safety Report 24377868 (Version 1)
Quarter: 2024Q3

REPORT INFORMATION
  Report Type: Spontaneous
  Country: US (occurrence: US)
  Receive Date: 20240930
  Receipt Date: 20240930
  Transmission Date: 20241017
  Serious: Yes (Other)
  Sender: ROCHE
  Company Number: US-ROCHE-10000073150

PATIENT

DRUGS (2)
  1. ERLOTINIB [Suspect]
     Active Substance: ERLOTINIB
     Indication: Lung neoplasm malignant
     Route: 065
  2. SORAFENIB [Concomitant]
     Active Substance: SORAFENIB

REACTIONS (2)
  - Thrombotic microangiopathy [Unknown]
  - Off label use [Unknown]
